FAERS Safety Report 18628120 (Version 2)
Quarter: 2021Q1

REPORT INFORMATION
  Report Type: Spontaneous
  Country: JP (occurrence: JP)
  Receive Date: 20201217
  Receipt Date: 20210322
  Transmission Date: 20210419
  Serious: Yes (Other)
  Sender: FDA-Public Use
  Company Number: JP-GLAXOSMITHKLINE-JP2020248866

PATIENT
  Age: 59 Year
  Sex: Male

DRUGS (5)
  1. LOXONIN [Concomitant]
     Active Substance: LOXOPROFEN SODIUM
     Indication: PSORIATIC ARTHROPATHY
     Dosage: UNK
     Route: 048
  2. VOLTAREN [Suspect]
     Active Substance: DICLOFENAC SODIUM
     Indication: PSORIATIC ARTHROPATHY
     Dosage: 37.5 MG, BID
     Route: 048
  3. COSENTYX [Suspect]
     Active Substance: SECUKINUMAB
     Indication: PSORIATIC ARTHROPATHY
     Dosage: 300 MG, QW
     Route: 058
     Dates: start: 20170104
  4. COSENTYX [Suspect]
     Active Substance: SECUKINUMAB
     Dosage: 300 MG, Q4W
     Route: 058
     Dates: start: 20170328, end: 20181016
  5. LOXONIN [Concomitant]
     Active Substance: LOXOPROFEN SODIUM
     Indication: BACK PAIN

REACTIONS (4)
  - Back pain [Not Recovered/Not Resolved]
  - Drug ineffective [Unknown]
  - Off label use [Unknown]
  - Psoriatic arthropathy [Recovering/Resolving]

NARRATIVE: CASE EVENT DATE: 20180306
